FAERS Safety Report 22997952 (Version 2)
Quarter: 2023Q4

REPORT INFORMATION
  Report Type: Spontaneous
  Country: CN (occurrence: CN)
  Receive Date: 20230928
  Receipt Date: 20231030
  Transmission Date: 20240110
  Serious: Yes (Death, Other)
  Sender: FDA-Public Use
  Company Number: CN-BoehringerIngelheim-2023-BI-263394

PATIENT
  Age: 53 Year
  Sex: Female

DRUGS (4)
  1. AFATINIB [Suspect]
     Active Substance: AFATINIB
     Indication: Lung adenocarcinoma stage IV
     Dates: start: 20220801, end: 20220830
  2. AFATINIB [Suspect]
     Active Substance: AFATINIB
     Indication: EGFR gene mutation
  3. PENPULIMAB [Concomitant]
     Active Substance: PENPULIMAB
     Indication: Non-small cell lung cancer stage IV
  4. pemetrexed plus carboplatin [Concomitant]
     Indication: Non-small cell lung cancer stage IV
     Dates: start: 20220731

REACTIONS (4)
  - Respiratory failure [Fatal]
  - Pulmonary embolism [Unknown]
  - Malignant neoplasm progression [Not Recovered/Not Resolved]
  - Drug ineffective [Unknown]

NARRATIVE: CASE EVENT DATE: 20220801
